FAERS Safety Report 15878099 (Version 1)
Quarter: 2019Q1

REPORT INFORMATION
  Report Type: Report from Study
  Country: None (occurrence: BE)
  Receive Date: 20190128
  Receipt Date: 20190128
  Transmission Date: 20190417
  Serious: Yes (Death)
  Sender: FDA-Public Use
  Company Number: BE-ABBVIE-19S-013-2641460-00

PATIENT
  Age: 71 Year
  Sex: Male

DRUGS (4)
  1. DUODOPA [Suspect]
     Active Substance: CARBIDOPA\LEVODOPA
     Dosage: MD=4ML, CD=3.3ML/HR DURING 16HRS, ED=0.8ML
     Route: 050
     Dates: start: 20080401, end: 20080601
  2. DUODOPA [Suspect]
     Active Substance: CARBIDOPA\LEVODOPA
     Dosage: DOSES CONTINUOUSLY MONITORED AND ADAPTED
     Route: 050
     Dates: start: 20080601, end: 20180328
  3. DUODOPA [Suspect]
     Active Substance: CARBIDOPA\LEVODOPA
     Indication: PARKINSON^S DISEASE
     Dosage: UNKNOWN DOSAGES
     Route: 050
     Dates: start: 20080303, end: 20080401
  4. DUODOPA [Suspect]
     Active Substance: CARBIDOPA\LEVODOPA
     Dosage: MD=0ML, CD=1.2ML/HR DURING 16HRS, ED=0.7ML
     Route: 050
     Dates: start: 20180328

REACTIONS (1)
  - Death [Fatal]

NARRATIVE: CASE EVENT DATE: 20190122
